FAERS Safety Report 24258678 (Version 1)
Quarter: 2024Q3

REPORT INFORMATION
  Report Type: Spontaneous
  Country: US (occurrence: US)
  Receive Date: 20240828
  Receipt Date: 20240828
  Transmission Date: 20241016
  Serious: No
  Sender: MERCK
  Company Number: US-009507513-2408USA003886

PATIENT
  Sex: Female
  Weight: 66.2 kg

DRUGS (13)
  1. WINREVAIR [Suspect]
     Active Substance: SOTATERCEPT-CSRK
     Indication: Product used for unknown indication
     Dosage: UNK
  2. REMODULIN [Suspect]
     Active Substance: TREPROSTINIL
     Indication: Pulmonary arterial hypertension
     Dosage: 0.061 MICROGRAM PER KILOGRAM, CONTINUOUS
     Route: 058
  3. REMODULIN [Suspect]
     Active Substance: TREPROSTINIL
     Dosage: UNK, CONTINUING
     Route: 058
     Dates: start: 20150720
  4. FUROSEMIDE [Concomitant]
     Active Substance: FUROSEMIDE
  5. IMODIUM A-D [Concomitant]
     Active Substance: LOPERAMIDE HYDROCHLORIDE
  6. CANDESARTAN CILEXETIL [Concomitant]
     Active Substance: CANDESARTAN CILEXETIL
  7. PANTOPRAZOLE SODIUM [Concomitant]
     Active Substance: PANTOPRAZOLE SODIUM
  8. OPSUMIT [Concomitant]
     Active Substance: MACITENTAN
  9. VITAMINS [Concomitant]
     Active Substance: VITAMINS
  10. LETAIRIS [Concomitant]
     Active Substance: AMBRISENTAN
  11. ADCIRCA [Concomitant]
     Active Substance: TADALAFIL
  12. SPIRONOLACTONE [Concomitant]
     Active Substance: SPIRONOLACTONE
  13. OXYGEN [Concomitant]
     Active Substance: OXYGEN

REACTIONS (2)
  - Rash [Unknown]
  - Headache [Unknown]
